FAERS Safety Report 12617151 (Version 3)
Quarter: 2016Q4

REPORT INFORMATION
  Report Type: Report from Study
  Country: US (occurrence: US)
  Receive Date: 20160803
  Receipt Date: 20161005
  Transmission Date: 20170207
  Serious: Yes (Other)
  Sender: FDA-Public Use
  Company Number: US-AMGEN-USASL2016098427

PATIENT
  Age: 57 Year
  Sex: Female

DRUGS (1)
  1. ENBREL [Suspect]
     Active Substance: ETANERCEPT
     Indication: RHEUMATOID ARTHRITIS
     Dosage: 50 MG, WEEKLY
     Route: 065
     Dates: start: 20160426

REACTIONS (15)
  - Rhinorrhoea [Unknown]
  - Scar [Unknown]
  - Dizziness [Unknown]
  - Upper respiratory tract infection [Recovering/Resolving]
  - Nausea [Unknown]
  - Impaired driving ability [Unknown]
  - Amenorrhoea [Not Recovered/Not Resolved]
  - Hypoacusis [Unknown]
  - Headache [Unknown]
  - Disturbance in attention [Not Recovered/Not Resolved]
  - Ear infection [Unknown]
  - Blister [Unknown]
  - Ocular discomfort [Unknown]
  - Crying [Not Recovered/Not Resolved]
  - Panic attack [Not Recovered/Not Resolved]

NARRATIVE: CASE EVENT DATE: 2016
